FAERS Safety Report 4590435-9 (Version None)
Quarter: 2005Q1

REPORT INFORMATION
  Report Type: 
  Country: None (occurrence: None)
  Receive Date: 20050224
  Receipt Date: 20041014
  Transmission Date: 20050727
  Serious: Yes (Life-Threatening, Hospitalization)
  Sender: FDA-Public Use
  Company Number: DE-MERCK-0411DEU00009

PATIENT
  Age: 93 Year
  Sex: Male
  Weight: 68 kg

DRUGS (5)
  1. VIOXX [Suspect]
     Route: 048
     Dates: start: 20040719, end: 20041001
  2. VERAPAMIL HYDROCHLORIDE [Concomitant]
     Route: 065
  3. CANDESARTAN CILEXETIL [Concomitant]
     Route: 065
  4. ALLOPURINOL [Concomitant]
     Route: 065
  5. BEZAFIBRATE [Concomitant]
     Route: 065

REACTIONS (6)
  - BRADYARRHYTHMIA [None]
  - CARDIAC FAILURE [None]
  - SKIN ULCER [None]
  - TACHYARRHYTHMIA [None]
  - VENOUS INSUFFICIENCY [None]
  - VISUAL ACUITY REDUCED [None]
